FAERS Safety Report 7128002-5 (Version None)
Quarter: 2010Q4

REPORT INFORMATION
  Report Type: 
  Country: None (occurrence: None)
  Receive Date: 20101130
  Receipt Date: 20101117
  Transmission Date: 20110411
  Serious: Yes (Death, Hospitalization, Other)
  Sender: FDA-Public Use
  Company Number: PHHY2010US58426

PATIENT
  Sex: Female

DRUGS (1)
  1. EXJADE [Suspect]
     Dosage: 3000 MG, QD
     Route: 048
     Dates: start: 20100818

REACTIONS (13)
  - ANAEMIA [None]
  - DEHYDRATION [None]
  - DIARRHOEA [None]
  - HEADACHE [None]
  - HEART RATE INCREASED [None]
  - HYPOKALAEMIA [None]
  - INFLUENZA LIKE ILLNESS [None]
  - MALAISE [None]
  - METABOLIC ACIDOSIS [None]
  - NAUSEA [None]
  - PAIN IN EXTREMITY [None]
  - SICKLE CELL ANAEMIA WITH CRISIS [None]
  - VOMITING [None]
